FAERS Safety Report 4724663-6 (Version None)
Quarter: 2005Q3

REPORT INFORMATION
  Report Type: 
  Country: None (occurrence: None)
  Receive Date: 20050719
  Receipt Date: 20050719
  Transmission Date: 20060218
  Serious: Yes (Life-Threatening, Hospitalization)
  Sender: FDA-Public Use
  Company Number: None

PATIENT
  Sex: Male
  Weight: 63.5036 kg

DRUGS (3)
  1. FENTANYL [Suspect]
     Indication: DYSPHAGIA
     Dosage: 2 PATCHES   ONCE TRANSDERMAL
     Route: 062
     Dates: start: 20050623, end: 20050624
  2. FENTANYL [Suspect]
     Indication: PHARYNGOLARYNGEAL PAIN
     Dosage: 2 PATCHES   ONCE TRANSDERMAL
     Route: 062
     Dates: start: 20050623, end: 20050624
  3. FENTANYL [Suspect]
     Indication: TONSILLECTOMY
     Dosage: 2 PATCHES   ONCE TRANSDERMAL
     Route: 062
     Dates: start: 20050623, end: 20050624

REACTIONS (6)
  - ASPIRATION [None]
  - LOSS OF CONSCIOUSNESS [None]
  - OVERDOSE [None]
  - OXYGEN SATURATION DECREASED [None]
  - PNEUMONIA [None]
  - VOMITING [None]
